FAERS Safety Report 10726246 (Version 2)
Quarter: 2015Q1

REPORT INFORMATION
  Report Type: Spontaneous
  Country: FR (occurrence: FR)
  Receive Date: 20150121
  Receipt Date: 20150216
  Transmission Date: 20150721
  Serious: Yes (Life-Threatening, Hospitalization, Other)
  Sender: FDA-Public Use
  Company Number: FR-ASTELLAS-2015US001695

PATIENT
  Age: 76 Year
  Sex: Female

DRUGS (8)
  1. RIFADINE [Suspect]
     Active Substance: RIFAMPIN
     Indication: TUBERCULOSIS
     Route: 048
     Dates: start: 20141203, end: 20141212
  2. PYRAZINAMIDE. [Suspect]
     Active Substance: PYRAZINAMIDE
     Indication: PRODUCT USED FOR UNKNOWN INDICATION
     Route: 048
     Dates: start: 20141203, end: 20141212
  3. ETHAMBUTOL [Suspect]
     Active Substance: ETHAMBUTOL HYDROCHLORIDE
     Indication: TUBERCULOSIS
     Dosage: UNK UNK, UNKNOWN FREQ.
     Route: 065
     Dates: start: 20141203, end: 20141212
  4. RIFADINE [Suspect]
     Active Substance: RIFAMPIN
     Route: 048
  5. ERLOTINIB [Suspect]
     Active Substance: ERLOTINIB
     Dosage: UNK, UNKNOWN FREQ.
     Route: 048
     Dates: start: 20150113
  6. RIMIFON [Suspect]
     Active Substance: ISONIAZID
     Indication: TUBERCULOSIS
     Route: 048
     Dates: start: 20141203, end: 20141212
  7. RIMIFON [Suspect]
     Active Substance: ISONIAZID
     Route: 048
  8. ERLOTINIB [Suspect]
     Active Substance: ERLOTINIB
     Indication: NON-SMALL CELL LUNG CANCER
     Route: 048
     Dates: start: 201310, end: 201412

REACTIONS (6)
  - Pulmonary embolism [Unknown]
  - Vomiting [Unknown]
  - Tuberculosis [Not Recovered/Not Resolved]
  - Drug interaction [Unknown]
  - Hepatocellular injury [Recovered/Resolved]
  - Cholestasis [Unknown]

NARRATIVE: CASE EVENT DATE: 20141212
